FAERS Safety Report 15287150 (Version 8)
Quarter: 2022Q2

REPORT INFORMATION
  Report Type: Report from Study
  Country: US (occurrence: None)
  Receive Date: 20180817
  Receipt Date: 20220419
  Transmission Date: 20220721
  Serious: Yes (Death, Hospitalization, Other)
  Sender: FDA-Public Use
  Company Number: US-ROCHE-2143168

PATIENT
  Age: 65 Year
  Sex: Female
  Weight: 46.72 kg

DRUGS (12)
  1. ATEZOLIZUMAB [Suspect]
     Active Substance: ATEZOLIZUMAB
     Indication: Ovarian cancer
     Dosage: LAST DOSE PRIOR TO THE SAE RECEIVED ON 29/MAY/2018
     Route: 042
     Dates: start: 20180502
  2. ATEZOLIZUMAB [Suspect]
     Active Substance: ATEZOLIZUMAB
     Dosage: LAST DOSE PRIOR TO THE SAE RECEIVED ON 24/JUL/2018
     Route: 042
     Dates: start: 20180724
  3. ATEZOLIZUMAB [Suspect]
     Active Substance: ATEZOLIZUMAB
     Dosage: LAST DOSE ADMINISTERED PRIOR TO SAE: 20/DEC/2018?CYCLE: 28 DAYS (MPDL3280A) 800 MG IV OVER 1 HOUR ON
     Route: 042
  4. BEVACIZUMAB [Suspect]
     Active Substance: BEVACIZUMAB
     Indication: Ovarian epithelial cancer
     Dosage: MOST RECENT DOSE (842 MG) ON 15/MAY/2018?LAST DOSE PRIOR TO THE SAE RECEIVED ON 29/MAY/2018
     Route: 042
     Dates: start: 20180502
  5. DOXORUBICIN HYDROCHLORIDE [Suspect]
     Active Substance: DOXORUBICIN HYDROCHLORIDE
     Indication: Ovarian epithelial cancer
     Dosage: MOST RECENT DOSE (79 MG) ON 02/MAY/2018?LAST DOSE PRIOR TO THE SAE RECEIVED ON 29/MAY/2018
     Route: 042
     Dates: start: 20180502
  6. DOXORUBICIN HYDROCHLORIDE [Suspect]
     Active Substance: DOXORUBICIN HYDROCHLORIDE
     Dosage: CYCLE: 28 DAYS PLD 40 MG/M2 IV OVER 1 HOUR ON DAY 1?LAST DOSE ADMINISTERED ON 06/DEC/2018
     Route: 042
  7. ASPIRIN [Concomitant]
     Active Substance: ASPIRIN
  8. BACLOFEN [Concomitant]
     Active Substance: BACLOFEN
  9. CLONAZEPAM [Concomitant]
     Active Substance: CLONAZEPAM
  10. TRAMADOL [Concomitant]
     Active Substance: TRAMADOL
  11. OMEGA-3 FATTY ACIDS [Concomitant]
     Active Substance: OMEGA-3 FATTY ACIDS
  12. POTASSIUM CHLORIDE [Concomitant]
     Active Substance: POTASSIUM CHLORIDE

REACTIONS (6)
  - Cardiac arrest [Fatal]
  - Small intestinal obstruction [Fatal]
  - Small intestinal obstruction [Not Recovered/Not Resolved]
  - Dehydration [Recovered/Resolved]
  - Abdominal pain [Recovered/Resolved]
  - Constipation [Recovered/Resolved]

NARRATIVE: CASE EVENT DATE: 20180525
